FAERS Safety Report 20351237 (Version 1)
Quarter: 2022Q1

REPORT INFORMATION
  Report Type: Spontaneous
  Country: US (occurrence: None)
  Receive Date: 20220118
  Receipt Date: 20220118
  Transmission Date: 20220424
  Serious: Yes (Other)
  Sender: FDA-Public Use
  Company Number: None

PATIENT
  Age: 15 Year
  Sex: Male
  Weight: 138.6 kg

DRUGS (1)
  1. BAMLANIVIMAB\ETESEVIMAB [Suspect]
     Active Substance: BAMLANIVIMAB\ETESEVIMAB
     Indication: COVID-19 treatment
     Route: 042
     Dates: start: 20220118, end: 20220118

REACTIONS (3)
  - Chest discomfort [None]
  - Dyspnoea [None]
  - Abdominal pain [None]

NARRATIVE: CASE EVENT DATE: 20220118
